FAERS Safety Report 14620565 (Version 1)
Quarter: 2018Q1

REPORT INFORMATION
  Report Type: Spontaneous
  Country: AU (occurrence: AU)
  Receive Date: 20180309
  Receipt Date: 20180309
  Transmission Date: 20180509
  Serious: Yes (Hospitalization, Disabling)
  Sender: FDA-Public Use
  Company Number: AU-ELI_LILLY_AND_COMPANY-AU201803001984

PATIENT
  Age: 29 Year
  Sex: Male
  Weight: 98 kg

DRUGS (1)
  1. ZYPREXA [Suspect]
     Active Substance: OLANZAPINE
     Indication: PRODUCT USED FOR UNKNOWN INDICATION
     Dosage: 10 MG, DAILY
     Route: 065
     Dates: start: 201503

REACTIONS (9)
  - Flat affect [Unknown]
  - Homicidal ideation [Unknown]
  - Social avoidant behaviour [Unknown]
  - Asthenia [Unknown]
  - Mental status changes [Unknown]
  - Weight increased [Unknown]
  - Aggression [Unknown]
  - Paranoia [Unknown]
  - Physical assault [Unknown]
